FAERS Safety Report 9104089 (Version 6)
Quarter: 2013Q2

REPORT INFORMATION
  Report Type: Report from Study
  Country: CA (occurrence: CA)
  Receive Date: 20130219
  Receipt Date: 20130613
  Transmission Date: 20140414
  Serious: Yes (Other)
  Sender: FDA-Public Use
  Company Number: PHHY2013CA015232

PATIENT
  Sex: Female

DRUGS (4)
  1. ACLASTA [Suspect]
     Indication: OSTEOPOROSIS
     Dosage: UKN, UKN, ANNUALLY
     Route: 042
     Dates: start: 20080727
  2. ACLASTA [Suspect]
     Dosage: UKN, UKN, ANNUALLY
     Route: 042
     Dates: start: 20090924
  3. ACLASTA [Suspect]
     Dosage: UKN, UKN, ANNUALLY
     Route: 042
     Dates: start: 20100922
  4. ACLASTA [Suspect]
     Dosage: UKN, UKN, ANNUALLY
     Route: 042
     Dates: start: 20110921

REACTIONS (5)
  - Pulmonary mass [Unknown]
  - Bronchitis [Unknown]
  - Blood pressure increased [Unknown]
  - Sinusitis [Unknown]
  - Malaise [Unknown]
